FAERS Safety Report 6370808-4 (Version None)
Quarter: 2009Q3

REPORT INFORMATION
  Report Type: 
  Country: None (occurrence: None)
  Receive Date: 20090923
  Receipt Date: 20070626
  Transmission Date: 20100115
  Serious: Yes (Other)
  Sender: FDA-Public Use
  Company Number: US-ASTRAZENECA-2006UW24851

PATIENT
  Age: 15174 Day
  Sex: Male
  Weight: 80.3 kg

DRUGS (9)
  1. SEROQUEL [Suspect]
     Indication: SLEEP DISORDER
     Dosage: TOTAL DAILY DOSE 200 MG
     Route: 048
     Dates: start: 19970101
  2. SEROQUEL [Suspect]
     Dosage: 200 MG QHS AND ADVANCE DOSE OF NEEDED UP TO 600 MG QHS
     Route: 048
     Dates: start: 20050110, end: 20050124
  3. SEROQUEL [Suspect]
     Dosage: 400 MG QHS- 3 (200 MG) QHS
     Route: 048
     Dates: start: 20060209
  4. ABILIFY [Concomitant]
  5. RISPERDAL [Concomitant]
  6. ZYPREXA [Concomitant]
  7. THORAZINE [Concomitant]
  8. PROLIXIN [Concomitant]
     Dates: start: 19950727
  9. COGENTIN [Concomitant]
     Dates: start: 20050110

REACTIONS (3)
  - DIABETES MELLITUS [None]
  - DIABETIC COMA [None]
  - KETOACIDOSIS [None]
